FAERS Safety Report 12764738 (Version 1)
Quarter: 2016Q3

REPORT INFORMATION
  Report Type: Spontaneous
  Country: US (occurrence: US)
  Receive Date: 20160921
  Receipt Date: 20160921
  Transmission Date: 20161109
  Serious: Yes (Hospitalization)
  Sender: FDA-Public Use
  Company Number: US-BEH-2016073600

PATIENT
  Sex: Male
  Weight: 103.86 kg

DRUGS (20)
  1. HIZENTRA [Suspect]
     Active Substance: HUMAN IMMUNOGLOBULIN G
     Indication: IMMUNODEFICIENCY COMMON VARIABLE
     Dosage: 10 G, UNK
     Route: 058
     Dates: start: 20101202
  2. ZETIA [Concomitant]
     Active Substance: EZETIMIBE
  3. LANTUS [Concomitant]
     Active Substance: INSULIN GLARGINE
  4. QUININE [Concomitant]
     Active Substance: QUININE
  5. ALLOPURINOL. [Concomitant]
     Active Substance: ALLOPURINOL
  6. EPIPEN [Concomitant]
     Active Substance: EPINEPHRINE
  7. TRICOR                             /00090101/ [Concomitant]
     Active Substance: ADENOSINE
  8. BENICAR [Concomitant]
     Active Substance: OLMESARTAN MEDOXOMIL
  9. FISH OIL [Concomitant]
     Active Substance: FISH OIL
  10. JANUMET [Concomitant]
     Active Substance: METFORMIN HYDROCHLORIDE\SITAGLIPTIN PHOSPHATE
  11. DIPHENHYDRAMINE. [Concomitant]
     Active Substance: DIPHENHYDRAMINE
  12. HUMALOG [Concomitant]
     Active Substance: INSULIN LISPRO
  13. VITAMINS WITH MINERALS [Concomitant]
     Active Substance: MINERALS\VITAMINS
  14. AMARYL [Concomitant]
     Active Substance: GLIMEPIRIDE
  15. LIDOCAINE/PRILOCAINE [Concomitant]
     Active Substance: LIDOCAINE\PRILOCAINE
  16. LMX                                /00033401/ [Concomitant]
  17. COLCRYS [Concomitant]
     Active Substance: COLCHICINE
  18. MAG GLYCINATE [Concomitant]
  19. ASPIRIN. [Concomitant]
     Active Substance: ASPIRIN
  20. VITAMIN D3 [Concomitant]
     Active Substance: CHOLECALCIFEROL

REACTIONS (2)
  - Blood pressure fluctuation [Unknown]
  - Pain in extremity [Unknown]
